FAERS Safety Report 17212208 (Version 1)
Quarter: 2019Q4

REPORT INFORMATION
  Report Type: Spontaneous
  Country: SE (occurrence: SE)
  Receive Date: 20191230
  Receipt Date: 20191230
  Transmission Date: 20200122
  Serious: Yes (Hospitalization)
  Sender: FDA-Public Use
  Company Number: SE-TEVA-2019-SE-1158591

PATIENT
  Sex: Male

DRUGS (4)
  1. STESOLID [Suspect]
     Active Substance: DIAZEPAM
     Dosage: 2 ST
     Route: 048
     Dates: start: 20180822, end: 20180822
  2. OXASCAND [Suspect]
     Active Substance: OXAZEPAM
     Dosage: 4
     Route: 048
     Dates: start: 20180822, end: 20180822
  3. ZOLPIDEM [Suspect]
     Active Substance: ZOLPIDEM TARTRATE
     Dosage: 6-8
     Route: 048
     Dates: start: 20180822, end: 20180822
  4. PROPAVAN [Suspect]
     Active Substance: PROPIOMAZINE
     Dosage: UP TO 20 PROPAVAN
     Route: 048
     Dates: start: 20180822, end: 20180822

REACTIONS (3)
  - Intentional overdose [Unknown]
  - Sleep disorder [Unknown]
  - Tachycardia [Unknown]

NARRATIVE: CASE EVENT DATE: 20180823
